FAERS Safety Report 23114820 (Version 1)
Quarter: 2023Q4

REPORT INFORMATION
  Report Type: Spontaneous
  Country: US (occurrence: None)
  Receive Date: 20231026
  Receipt Date: 20231026
  Transmission Date: 20240109
  Serious: Yes (Hospitalization)
  Sender: FDA-Public Use
  Company Number: None

PATIENT
  Sex: Female
  Weight: 67.9 kg

DRUGS (8)
  1. CYCLOPHOSPHAMIDE [Suspect]
     Active Substance: CYCLOPHOSPHAMIDE
     Dates: end: 20231015
  2. CYTARABINE [Suspect]
     Active Substance: CYTARABINE
     Dates: end: 20231012
  3. DEXAMETHASONE [Suspect]
     Active Substance: DEXAMETHASONE
     Dates: end: 20231015
  4. DOXORUBICIN HYDROCHLORIDE [Suspect]
     Active Substance: DOXORUBICIN HYDROCHLORIDE
     Dates: end: 20231015
  5. MESNA [Suspect]
     Active Substance: MESNA
     Dates: end: 20231014
  6. METHOTREXATE [Suspect]
     Active Substance: METHOTREXATE
     Dates: end: 20231018
  7. PONATINIB [Suspect]
     Active Substance: PONATINIB
     Dates: end: 20231024
  8. VINCRISTINE SULFATE [Suspect]
     Active Substance: VINCRISTINE SULFATE
     Dates: end: 20231015

REACTIONS (7)
  - Syncope [None]
  - Dehydration [None]
  - Platelet count decreased [None]
  - Haemoglobin decreased [None]
  - Blood culture positive [None]
  - Streptococcal bacteraemia [None]
  - Infusion related reaction [None]

NARRATIVE: CASE EVENT DATE: 20231024
